FAERS Safety Report 5403346-3 (Version None)
Quarter: 2007Q3

REPORT INFORMATION
  Report Type: 
  Country: None (occurrence: None)
  Receive Date: 20070801
  Receipt Date: 20070730
  Transmission Date: 20080115
  Serious: Yes (Death)
  Sender: FDA-Public Use
  Company Number: DE-MERCK-0707DEU00126

PATIENT
  Age: 25 Year
  Sex: Male
  Weight: 81 kg

DRUGS (4)
  1. CANCIDAS [Suspect]
     Indication: PNEUMONIA PRIMARY ATYPICAL
     Route: 042
     Dates: start: 20050714, end: 20050720
  2. SEMPERA [Suspect]
     Indication: FUNGAL INFECTION
     Route: 042
     Dates: start: 20050711, end: 20050712
  3. SEMPERA [Suspect]
     Route: 042
     Dates: start: 20050713, end: 20050714
  4. KLACID [Suspect]
     Indication: PNEUMONIA PRIMARY ATYPICAL
     Route: 048
     Dates: start: 20050714, end: 20050720

REACTIONS (3)
  - BLOOD BILIRUBIN INCREASED [None]
  - RESPIRATORY FAILURE [None]
  - SEPSIS [None]
